FAERS Safety Report 9189831 (Version 1)
Quarter: 2013Q1

REPORT INFORMATION
  Report Type: Spontaneous
  Country: US (occurrence: US)
  Receive Date: 20130326
  Receipt Date: 20130326
  Transmission Date: 20140127
  Serious: Yes (Other)
  Sender: FDA-Public Use
  Company Number: US-PFIZER INC-2013096835

PATIENT
  Age: 71 Year
  Sex: Female
  Weight: 104 kg

DRUGS (19)
  1. XELJANZ [Suspect]
     Dosage: 5 MG, 2X/DAY
     Route: 048
  2. PREDNISONE [Concomitant]
     Dosage: 10 MG, UNK
  3. FLUTICASONE [Concomitant]
     Dosage: 50 NG, UNK
  4. FUROSEMIDE [Concomitant]
     Dosage: 40 MG, UNK
  5. METHOTREXATE [Concomitant]
     Dosage: 2.5 MG, UNK
  6. FENTANYL [Concomitant]
     Dosage: 50 NG, /HR
  7. SIMVASTATIN [Concomitant]
     Dosage: 40 MG, UNK
  8. GABAPENTIN [Concomitant]
     Dosage: 100 MG, UNK
  9. LEVOTHYROXINE [Concomitant]
     Dosage: 100 NG, UNK
  10. CLONIDINE [Concomitant]
     Dosage: 0.1 MG, UNK
  11. KEFLEX [Concomitant]
     Dosage: 500 MG, UNK
  12. PREVACID [Concomitant]
     Dosage: 30 MG, UNK
  13. OXYCODONE/PARACETAMOL [Concomitant]
     Dosage: 7.5 - 500
  14. STOOL SOFTENER [Concomitant]
     Dosage: 240 MG, UNK
  15. FISH OIL [Concomitant]
     Dosage: UNK
  16. ZETIA [Concomitant]
     Dosage: 10 MG, UNK
  17. VITAMIN D3 [Concomitant]
     Dosage: 5000 UNITS, UNK
  18. FOLIC ACID [Concomitant]
     Dosage: 20 MG, UNK
  19. NORTRIPTYLINE [Concomitant]
     Dosage: 50 MG, UNK

REACTIONS (4)
  - Infected bites [Recovering/Resolving]
  - Back pain [Unknown]
  - Pain in extremity [Unknown]
  - Musculoskeletal pain [Unknown]
